FAERS Safety Report 15860514 (Version 3)
Quarter: 2019Q3

REPORT INFORMATION
  Report Type: Spontaneous
  Country: US (occurrence: US)
  Receive Date: 20190123
  Receipt Date: 20190917
  Transmission Date: 20191004
  Serious: Yes (Other)
  Sender: FDA-Public Use
  Company Number: US-HLSUS-2017-US-000676

PATIENT
  Sex: Male
  Weight: 215 kg

DRUGS (2)
  1. LITHIUM. [Concomitant]
     Active Substance: LITHIUM
     Dosage: 600 MG
  2. CLOZARIL [Suspect]
     Active Substance: CLOZAPINE
     Dosage: 200 MG IN THE MORNING AND 200 MG AT BEDTIME
     Route: 048
     Dates: start: 201709

REACTIONS (15)
  - Stress [Recovering/Resolving]
  - Paranoia [Unknown]
  - Schizoaffective disorder [Unknown]
  - Moaning [Unknown]
  - Flashback [Unknown]
  - Anxiety [Recovering/Resolving]
  - Agitation [Unknown]
  - Post-traumatic stress disorder [Unknown]
  - Pericardial effusion [Unknown]
  - Delusion [Unknown]
  - Drug ineffective [Unknown]
  - Tachycardia [Unknown]
  - Reading disorder [Unknown]
  - Weight increased [Unknown]
  - Fatigue [Unknown]

NARRATIVE: CASE EVENT DATE: 20181231
